FAERS Safety Report 18648008 (Version 1)
Quarter: 2020Q4

REPORT INFORMATION
  Report Type: Spontaneous
  Country: DE (occurrence: DE)
  Receive Date: 20201222
  Receipt Date: 20201222
  Transmission Date: 20210114
  Serious: Yes (Hospitalization)
  Sender: FDA-Public Use
  Company Number: DE-ACCORD-211712

PATIENT
  Age: 75 Year
  Sex: Male

DRUGS (9)
  1. SPIRONOLACTONE. [Suspect]
     Active Substance: SPIRONOLACTONE
     Indication: PRODUCT USED FOR UNKNOWN INDICATION
     Dosage: 50 MG, 1-0-0-0, TABLET
  2. TORASEMIDE [Suspect]
     Active Substance: TORSEMIDE
     Indication: PRODUCT USED FOR UNKNOWN INDICATION
     Dosage: 20 MG, 0.5-0-0-0, TABLET
  3. ORNITHINE ASPARTATE [Concomitant]
     Active Substance: ORNITHINE ASPARTATE
     Dosage: 3 G, 1-0-1-0, GRANULES
  4. PANTOPRAZOLE [Concomitant]
     Active Substance: PANTOPRAZOLE
     Dosage: 40 MG, 1-0-0-0, TABLET
  5. EISEN II [Concomitant]
     Active Substance: FERROUS SULFATE
     Dosage: 100 MG, 1-0-0-0, CAPSULE
  6. CARVEDILOL/CARVEDILOL HYDROCHLODRIDE [Concomitant]
     Active Substance: CARVEDILOL HYDROCHLORIDE
     Dosage: 6.25 MG, 1-0-0-0, TABLET
  7. VITAMIN B1 [Concomitant]
     Active Substance: THIAMINE HYDROCHLORIDE
     Dosage: 100 MG, 1-0-0-0,
  8. LACTULOSE. [Concomitant]
     Active Substance: LACTULOSE
     Dosage: 20 ML, 1-1-1-0, SYRUP
  9. ACETYLSALICYLIC ACID [Suspect]
     Active Substance: ASPIRIN
     Indication: PRODUCT USED FOR UNKNOWN INDICATION
     Dosage: 100 MG, 1-0-0-0, TABLET

REACTIONS (4)
  - Asthenia [Unknown]
  - Fall [Unknown]
  - Anaemia [Unknown]
  - Fatigue [Unknown]
